FAERS Safety Report 20976209 (Version 2)
Quarter: 2022Q3

REPORT INFORMATION
  Report Type: Spontaneous
  Country: US (occurrence: US)
  Receive Date: 20220617
  Receipt Date: 20220718
  Transmission Date: 20221027
  Serious: Yes (Other)
  Sender: FDA-Public Use
  Company Number: US-PFIZER INC-PV202200003030

PATIENT
  Age: 64 Year
  Sex: Female

DRUGS (2)
  1. VYNDAMAX [Suspect]
     Active Substance: TAFAMIDIS
     Indication: Cardiac amyloidosis
     Dosage: 61 MG, DAILY
     Dates: start: 202001
  2. ONPATTRO [Concomitant]
     Active Substance: PATISIRAN SODIUM
     Dosage: UNK, EVERY 3 WEEKS (INFUSIONS)
     Dates: start: 20211013

REACTIONS (14)
  - Polyneuropathy [Unknown]
  - Autonomic nervous system imbalance [Unknown]
  - Burning sensation [Unknown]
  - Electric shock sensation [Unknown]
  - Gait disturbance [Recovering/Resolving]
  - Hypertension [Unknown]
  - Joint instability [Recovering/Resolving]
  - Dysgraphia [Unknown]
  - Muscle spasms [Unknown]
  - Palpitations [Unknown]
  - Abdominal distension [Unknown]
  - Bradykinesia [Unknown]
  - Joint swelling [Unknown]
  - Exercise tolerance decreased [Unknown]
